FAERS Safety Report 9833456 (Version 4)
Quarter: 2014Q1

REPORT INFORMATION
  Report Type: Spontaneous
  Country: JP (occurrence: JP)
  Receive Date: 20140122
  Receipt Date: 20140221
  Transmission Date: 20141002
  Serious: Yes (Other)
  Sender: FDA-Public Use
  Company Number: JP-009507513-1401JPN006421

PATIENT
  Age: 67 Year
  Sex: Female
  Weight: 52 kg

DRUGS (8)
  1. TRUSOPT OPHTHALMIC SOLUTION 0.5% [Suspect]
     Indication: INTRAOCULAR PRESSURE INCREASED
     Dosage: 1 GTT, BID
     Route: 047
     Dates: start: 20140108, end: 20140108
  2. ODOMEL [Suspect]
     Indication: OCULAR HYPERAEMIA
     Dosage: AT THE HYPEREMIA
     Route: 047
     Dates: start: 20130312, end: 20131224
  3. ODOMEL [Suspect]
     Indication: EYE DISCHARGE
  4. CRAVIT [Suspect]
     Indication: EYE DISCHARGE
     Dosage: 1 GTT, TID
     Route: 047
     Dates: start: 20130312
  5. CRAVIT [Suspect]
     Indication: HYPERAEMIA
  6. FLUMETHOLON [Concomitant]
     Indication: CONJUNCTIVITIS
     Dosage: 1 GTT, TID
     Route: 047
     Dates: start: 201303
  7. AMLODIPINE [Concomitant]
     Dosage: UNKNOWN
     Route: 065
  8. MUCOSOLVAN [Concomitant]
     Dosage: UNKNOWN
     Route: 065

REACTIONS (4)
  - Uveitis [Recovering/Resolving]
  - Iritis [Recovering/Resolving]
  - Choroidal detachment [Recovered/Resolved]
  - Discomfort [Unknown]
